FAERS Safety Report 4426890-4 (Version None)
Quarter: 2004Q3

REPORT INFORMATION
  Report Type: 
  Country: None (occurrence: None)
  Receive Date: 20040811
  Receipt Date: 20040728
  Transmission Date: 20050211
  Serious: Yes (Hospitalization, Other)
  Sender: FDA-Public Use
  Company Number: 2004-DE-03811DE

PATIENT
  Age: 88 Year
  Sex: Female

DRUGS (6)
  1. SIFROL(PRAMIPEXOLE DIHYDROCHLORIDE) (TA) [Suspect]
     Indication: PARKINSON'S DISEASE
     Dosage: 0.72 MG (0.36 MG)  PO
     Route: 048
     Dates: start: 20040110, end: 20040625
  2. ASPIRIN [Concomitant]
  3. MODURETIK MITE [Concomitant]
  4. MONOMACK 40 [Concomitant]
  5. NITRENDIPIN 20 [Concomitant]
  6. DIUTENSAT (DYAZIDE) [Concomitant]

REACTIONS (5)
  - CONDITION AGGRAVATED [None]
  - CONFUSIONAL STATE [None]
  - DEMENTIA [None]
  - DISTURBANCE IN ATTENTION [None]
  - HYPONATRAEMIA [None]
